FAERS Safety Report 10459161 (Version 1)
Quarter: 2014Q3

REPORT INFORMATION
  Report Type: Spontaneous
  Country: FR (occurrence: FR)
  Receive Date: 20140917
  Receipt Date: 20140917
  Transmission Date: 20150326
  Serious: Yes (Life-Threatening, Hospitalization)
  Sender: FDA-Public Use
  Company Number: FR-ASTRAZENECA-2014SE67215

PATIENT
  Age: 9332 Day
  Sex: Female

DRUGS (7)
  1. AMOXICILLINE ACIDE CLAVULANIQUE SANDOZ [Suspect]
     Active Substance: AMOXICILLIN\CLAVULANATE POTASSIUM
     Indication: ANTIBIOTIC PROPHYLAXIS
     Dosage: FOUR TIMES 2 GRAMS AT 08:45, 10:45, 12:45 AND 14:45, INFUSION FOR 15 MINUTES
     Route: 042
     Dates: start: 20140702, end: 20140702
  2. SUFENTA [Suspect]
     Active Substance: SUFENTANIL CITRATE
     Route: 042
     Dates: start: 20140702, end: 20140702
  3. TANGANIL [Suspect]
     Active Substance: ACETYLLEUCINE
     Dates: start: 20140702, end: 20140702
  4. HYPNOVEL [Suspect]
     Active Substance: MIDAZOLAM\MIDAZOLAM HYDROCHLORIDE
     Route: 042
     Dates: start: 20140702, end: 20140702
  5. DIPRIVAN [Suspect]
     Active Substance: PROPOFOL
     Route: 042
     Dates: start: 20140702, end: 20140702
  6. TRACRIUM [Suspect]
     Active Substance: ATRACURIUM BESYLATE
     Route: 042
     Dates: start: 20140702, end: 20140702
  7. PERFALGAN [Concomitant]
     Active Substance: ACETAMINOPHEN
     Dates: start: 20140702, end: 20140702

REACTIONS (1)
  - Renal failure acute [Recovered/Resolved]

NARRATIVE: CASE EVENT DATE: 20140702
